FAERS Safety Report 5731440-6 (Version None)
Quarter: 2008Q2

REPORT INFORMATION
  Report Type: 
  Country: None (occurrence: None)
  Receive Date: 20080506
  Receipt Date: 20080506
  Transmission Date: 20081010
  Serious: No
  Sender: FDA-Public Use
  Company Number: None

PATIENT
  Sex: Male

DRUGS (4)
  1. DURAGESIC-100 [Suspect]
     Indication: ANKYLOSING SPONDYLITIS
     Dosage: 100 MCG Q 2D 50 MCG Q 2D TRANSDERMAL
     Route: 062
     Dates: start: 20050713
  2. DURAGESIC-100 [Suspect]
     Indication: OSTEOARTHRITIS
     Dosage: 100 MCG Q 2D 50 MCG Q 2D TRANSDERMAL
     Route: 062
     Dates: start: 20050713
  3. DURAGESIC-100 [Suspect]
     Indication: ANKYLOSING SPONDYLITIS
     Dosage: 100 MCG Q 2D 50 MCG Q 2D TRANSDERMAL
     Route: 062
     Dates: start: 20050805
  4. DURAGESIC-100 [Suspect]
     Indication: OSTEOARTHRITIS
     Dosage: 100 MCG Q 2D 50 MCG Q 2D TRANSDERMAL
     Route: 062
     Dates: start: 20050805

REACTIONS (1)
  - RASH [None]
